FAERS Safety Report 21692870 (Version 2)
Quarter: 2022Q4

REPORT INFORMATION
  Report Type: Spontaneous
  Country: IT (occurrence: IT)
  Receive Date: 20221207
  Receipt Date: 20221209
  Transmission Date: 20230113
  Serious: Yes (Hospitalization)
  Sender: FDA-Public Use
  Company Number: IT-MINISAL02-894783

PATIENT
  Age: 55 Year
  Sex: Female

DRUGS (7)
  1. OXALIPLATIN [Suspect]
     Active Substance: OXALIPLATIN
     Indication: Colon cancer
     Dosage: 117.57 MILLIGRAM, 1DOSE/28DAYS
     Route: 040
     Dates: start: 20210427, end: 20221108
  2. FLUOROURACIL [Concomitant]
     Active Substance: FLUOROURACIL
     Indication: Colon cancer
     Dosage: UNK
     Route: 065
  3. FLUOROURACIL [Concomitant]
     Active Substance: FLUOROURACIL
     Indication: Colon cancer
     Dosage: 750MG  DIE G1-2, G8-9, G15-16, G22-23 DI UN CICLO DI 28 GIORNI?(IL 5FU IN INFUSIONE CONTINUA NOTTURN
     Route: 065
     Dates: start: 20210420, end: 20221102
  4. IRINOTECAN HYDROCHLORIDE [Concomitant]
     Active Substance: IRINOTECAN HYDROCHLORIDE
     Indication: Colon cancer
     Dosage: UNK
     Route: 065
  5. IRINOTECAN HYDROCHLORIDE [Concomitant]
     Active Substance: IRINOTECAN HYDROCHLORIDE
     Indication: Colon cancer
     Dosage: IRINOTECAN 120MG/MQ G1, G15;
     Route: 065
     Dates: start: 20210420, end: 20221102
  6. ALYMSYS [Concomitant]
     Active Substance: BEVACIZUMAB-MALY
     Indication: Colon cancer
     Dosage: 295 MILLIGRAM, UNK
     Route: 065
  7. ALYMSYS [Concomitant]
     Active Substance: BEVACIZUMAB-MALY
     Indication: Colon cancer
     Dosage: BEVACIZUMAB 5MG/KG G1-G15, I
     Route: 065
     Dates: start: 20221012, end: 20221102

REACTIONS (4)
  - Pruritus [Recovered/Resolved]
  - Palmar erythema [Recovered/Resolved]
  - Palmar erythema [Recovered/Resolved]
  - Pruritus [Recovered/Resolved]

NARRATIVE: CASE EVENT DATE: 20221108
